FAERS Safety Report 10075117 (Version 1)
Quarter: 2014Q2

REPORT INFORMATION
  Report Type: Spontaneous
  Country: US (occurrence: US)
  Receive Date: 20140414
  Receipt Date: 20140414
  Transmission Date: 20141212
  Serious: No
  Sender: FDA-Public Use
  Company Number: US-BIOGENIDEC-2014BI029665

PATIENT
  Sex: Female

DRUGS (8)
  1. TECFIDERA [Suspect]
     Indication: MULTIPLE SCLEROSIS
     Route: 048
     Dates: start: 201303
  2. LORATADINE [Concomitant]
  3. AMBIEN [Concomitant]
  4. CELEXA [Concomitant]
  5. AMPYRA ER [Concomitant]
  6. AMLODIPINE [Concomitant]
  7. CALCIUM CITRATE + D [Concomitant]
  8. FLOMAX [Concomitant]

REACTIONS (3)
  - Depression [Unknown]
  - Decreased interest [Unknown]
  - Rash [Unknown]
